FAERS Safety Report 21295680 (Version 1)
Quarter: 2022Q3

REPORT INFORMATION
  Report Type: Spontaneous
  Country: NL (occurrence: None)
  Receive Date: 20220906
  Receipt Date: 20220906
  Transmission Date: 20221026
  Serious: Yes (Hospitalization, Other)
  Sender: FDA-Public Use
  Company Number: 2021A902254

PATIENT
  Age: 72 Year
  Sex: Male

DRUGS (7)
  1. ONDEXXYA [Suspect]
     Active Substance: ANDEXANET ALFA
     Indication: Procoagulant therapy
     Dosage: 400 MG BOLUS FOLLOWED BY 4 MG/MINUTE INFUSION FOR TWO HOURS
     Route: 040
     Dates: start: 20200729, end: 20200729
  2. APIXABAN [Concomitant]
     Active Substance: APIXABAN
     Route: 065
  3. BISOPROLOL [Concomitant]
     Active Substance: BISOPROLOL
     Dosage: 2.5MG UNKNOWN
     Route: 065
  4. AMIODARONE [Concomitant]
     Active Substance: AMIODARONE
     Dosage: 100.0MG UNKNOWN
     Route: 065
  5. BUMETANIDE [Concomitant]
     Active Substance: BUMETANIDE
     Dosage: 1.0MG UNKNOWN
     Route: 065
  6. SPIRONOLACTONE [Concomitant]
     Active Substance: SPIRONOLACTONE
     Dosage: 25.0MG UNKNOWN
     Route: 065
  7. OMEPRAZOLE [Concomitant]
     Active Substance: OMEPRAZOLE
     Dosage: 40.0MG UNKNOWN
     Route: 065

REACTIONS (4)
  - Device related thrombosis [Unknown]
  - Thrombosis [Recovered/Resolved]
  - Heparin resistance [Recovered/Resolved]
  - Off label use [Unknown]

NARRATIVE: CASE EVENT DATE: 20200729
